FAERS Safety Report 8813704 (Version 1)
Quarter: 2012Q4

REPORT INFORMATION
  Report Type: 
  Country: TR (occurrence: TR)
  Receive Date: 20120928
  Receipt Date: 20120928
  Transmission Date: 20130627
  Serious: Yes (Death, Hospitalization)
  Sender: FDA-Public Use
  Company Number: TR-AMGEN-TURSP2012060810

PATIENT
  Age: 56 Year
  Sex: Male

DRUGS (2)
  1. ENBREL [Suspect]
     Indication: ANKYLOSING SPONDYLITIS
     Dosage: 50 mg, weekly
     Route: 058
     Dates: start: 20111229
  2. ENBREL [Suspect]
     Dosage: UNK UNK, UNK

REACTIONS (5)
  - Death [Fatal]
  - Myocardial infarction [Unknown]
  - Respiratory failure [Unknown]
  - Renal failure [Unknown]
  - Pain [Unknown]
